FAERS Safety Report 16522808 (Version 1)
Quarter: 2019Q3

REPORT INFORMATION
  Report Type: Spontaneous
  Country: GB (occurrence: GB)
  Receive Date: 20190703
  Receipt Date: 20190703
  Transmission Date: 20191004
  Serious: Yes (Other)
  Sender: FDA-Public Use
  Company Number: PHHY2019GB150551

PATIENT
  Sex: Female

DRUGS (1)
  1. LEVETIRACETAM. [Suspect]
     Active Substance: LEVETIRACETAM
     Indication: PRODUCT USED FOR UNKNOWN INDICATION
     Dosage: 3000 MG, QD (1500 MG, 2X/DAY (BID))
     Route: 065

REACTIONS (6)
  - Sleep disorder [Unknown]
  - Seizure [Unknown]
  - Maternal exposure during pregnancy [Unknown]
  - Somnolence [Unknown]
  - Fatigue [Unknown]
  - Maternal exposure during breast feeding [Unknown]
